FAERS Safety Report 26168089 (Version 1)
Quarter: 2025Q4

REPORT INFORMATION
  Report Type: Report from Study
  Country: CO (occurrence: CO)
  Receive Date: 20251217
  Receipt Date: 20251217
  Transmission Date: 20260118
  Serious: Yes (Other)
  Sender: JOHNSON AND JOHNSON
  Company Number: CO-JNJFOC-20251158768

PATIENT
  Age: 60 Year
  Sex: Female
  Weight: 50 kg

DRUGS (3)
  1. INVEGA SUSTENNA [Suspect]
     Active Substance: PALIPERIDONE PALMITATE
     Indication: Schizoaffective disorder
     Dosage: LAST ADMINISTRATION DATE: 06-OCT-2025.
     Route: 030
  2. INVEGA SUSTENNA [Suspect]
     Active Substance: PALIPERIDONE PALMITATE
  3. INVEGA SUSTENNA [Suspect]
     Active Substance: PALIPERIDONE PALMITATE

REACTIONS (3)
  - Unresponsive to stimuli [Unknown]
  - Abnormal behaviour [Unknown]
  - Drug ineffective [Unknown]

NARRATIVE: CASE EVENT DATE: 20251113
